FAERS Safety Report 4552777-2 (Version None)
Quarter: 2005Q1

REPORT INFORMATION
  Report Type: 
  Country: None (occurrence: None)
  Receive Date: 20050111
  Receipt Date: 20050111
  Transmission Date: 20050727
  Serious: Yes (Hospitalization)
  Sender: FDA-Public Use
  Company Number: None

PATIENT
  Age: 86 Year
  Sex: Male
  Weight: 88.1 kg

DRUGS (13)
  1. ALEVE [Suspect]
  2. PLAVIX [Suspect]
     Dosage: 75MG DAILY
  3. ASPIRIN [Suspect]
     Dosage: 81MG DAILY
  4. XALATAN [Concomitant]
  5. NITROGLYCERIN SL [Concomitant]
  6. XANAX [Concomitant]
  7. IMDUR [Concomitant]
  8. ALLOPURINOL [Concomitant]
  9. PROSCAR [Concomitant]
  10. FLOMAX [Concomitant]
  11. LASIX [Concomitant]
  12. ALTACE [Concomitant]
  13. METAMUCIL-2 [Concomitant]

REACTIONS (1)
  - GASTROINTESTINAL HAEMORRHAGE [None]
